FAERS Safety Report 12906091 (Version 1)
Quarter: 2016Q4

REPORT INFORMATION
  Report Type: Spontaneous
  Country: US (occurrence: US)
  Receive Date: 20161102
  Receipt Date: 20161102
  Transmission Date: 20170207
  Serious: No
  Sender: FDA-Public Use
  Company Number: None

PATIENT
  Age: 58 Year
  Sex: Female
  Weight: 88.45 kg

DRUGS (4)
  1. LORATADINE. [Concomitant]
     Active Substance: LORATADINE
  2. CULTURELLE [Suspect]
     Active Substance: LACTOBACILLUS RHAMNOSUS
  3. EQUATE ALLERGY [Concomitant]
  4. HYOSCYAMINE VIRTUS PHARMACEUTICALS/PHARMA TEC [Suspect]
     Active Substance: HYOSCYAMINE
     Indication: IRRITABLE BOWEL SYNDROME
     Dosage: HYOSCYAMINE 3 DF DAILY PO 7AM, 3PM, 10PM
     Route: 048
     Dates: start: 20130404

REACTIONS (2)
  - Fear [None]
  - Palpitations [None]

NARRATIVE: CASE EVENT DATE: 2016
